FAERS Safety Report 9573762 (Version 4)
Quarter: 2013Q4

REPORT INFORMATION
  Report Type: Spontaneous
  Country: JP (occurrence: JP)
  Receive Date: 20131001
  Receipt Date: 20131029
  Transmission Date: 20140711
  Serious: Yes (Hospitalization)
  Sender: FDA-Public Use
  Company Number: JP-PFIZER INC-2013279542

PATIENT
  Age: 61 Year
  Sex: Female
  Weight: 55 kg

DRUGS (9)
  1. LIPITOR [Suspect]
     Indication: HYPERCHOLESTEROLAEMIA
     Dosage: 10 MG, 1X/DAY
     Route: 048
     Dates: start: 20090807, end: 20130911
  2. FEMARA [Suspect]
     Indication: BREAST CANCER
     Dosage: 2.5 MG, 1X/DAY
     Route: 048
     Dates: start: 20130327, end: 20130911
  3. BLOPRESS [Concomitant]
     Indication: HYPERTENSION
     Dosage: UNK
     Dates: start: 20030224, end: 20130911
  4. LANSOPRAZOLE [Concomitant]
     Indication: GASTROOESOPHAGEAL REFLUX DISEASE
     Dosage: UNK
  5. CONIEL [Concomitant]
     Indication: HYPERTENSION
     Dosage: UNK
     Dates: start: 20100510
  6. AMARYL [Concomitant]
     Indication: DIABETES MELLITUS
     Dosage: UNK
     Dates: start: 20110902, end: 20130911
  7. PIOGLITAZONE [Concomitant]
     Indication: DIABETES MELLITUS
     Dosage: UNK
     Dates: start: 20090515, end: 20130911
  8. METGLUCO [Concomitant]
     Indication: DIABETES MELLITUS
     Dosage: UNK
     Dates: start: 20110902, end: 20130911
  9. NESINA [Concomitant]
     Indication: DIABETES MELLITUS
     Dosage: UNK
     Dates: start: 20110902, end: 20130911

REACTIONS (3)
  - Pancytopenia [Not Recovered/Not Resolved]
  - Breast cancer female [Recovering/Resolving]
  - Gastrooesophageal reflux disease [Unknown]
